FAERS Safety Report 7557904-0 (Version None)
Quarter: 2011Q2

REPORT INFORMATION
  Report Type: 
  Country: None (occurrence: None)
  Receive Date: 20110620
  Receipt Date: 20110210
  Transmission Date: 20111010
  Serious: Yes (Hospitalization)
  Sender: FDA-Public Use
  Company Number: A0912902A

PATIENT
  Age: 87 Day
  Sex: Female
  Weight: 2.2 kg

DRUGS (9)
  1. ZOVIRAX [Suspect]
     Indication: HERPES SIMPLEX
     Route: 048
     Dates: start: 20101231, end: 20110206
  2. MULTIVITAMIN WITH IRON [Concomitant]
  3. ACTIGALL [Concomitant]
  4. PHENOBARBITAL TAB [Concomitant]
  5. ACYCLOVIR [Suspect]
     Route: 048
     Dates: start: 20110221, end: 20110315
  6. PREVACID [Concomitant]
  7. ACYCLOVIR [Concomitant]
     Dates: start: 20101119, end: 20110221
  8. BENEFIBER [Concomitant]
  9. TPN [Concomitant]

REACTIONS (3)
  - DIARRHOEA [None]
  - FAECAL VOLUME INCREASED [None]
  - DRUG ADMINISTRATION ERROR [None]
